APPROVED DRUG PRODUCT: LAMISIL
Active Ingredient: TERBINAFINE
Strength: 1%
Dosage Form/Route: GEL;TOPICAL
Application: N020846 | Product #001
Applicant: KARO HEALTHCARE INC
Approved: Apr 29, 1998 | RLD: No | RS: No | Type: DISCN